FAERS Safety Report 8277860-X (Version None)
Quarter: 2012Q2

REPORT INFORMATION
  Report Type: 
  Country: None (occurrence: None)
  Receive Date: 20120412
  Receipt Date: 20120403
  Transmission Date: 20120825
  Serious: Yes (Hospitalization)
  Sender: FDA-Public Use
  Company Number: PHHY2012EC030459

PATIENT
  Sex: Female

DRUGS (2)
  1. EXFORGE [Suspect]
     Indication: HYPERTENSION
     Dosage: 1 DF (160/5 MG), DAILY
     Route: 048
     Dates: start: 20101031
  2. ACETAMINOPHEN [Concomitant]

REACTIONS (7)
  - HEADACHE [None]
  - CONDITION AGGRAVATED [None]
  - MALAISE [None]
  - CHOLELITHIASIS [None]
  - DENGUE FEVER [None]
  - PYREXIA [None]
  - VOMITING [None]
